FAERS Safety Report 18907462 (Version 2)
Quarter: 2021Q3

REPORT INFORMATION
  Report Type: Report from Study
  Country: None (occurrence: GB)
  Receive Date: 20210217
  Receipt Date: 20210825
  Transmission Date: 20211014
  Serious: Yes (Other)
  Sender: FDA-Public Use
  Company Number: GB-ABBVIE-21K-167-3778068-00

PATIENT
  Age: 41 Year
  Sex: Female

DRUGS (4)
  1. ATAZANAVIR. [Suspect]
     Active Substance: ATAZANAVIR
     Indication: PRODUCT USED FOR UNKNOWN INDICATION
     Dosage: 1 (TRIMESTER)?AUROBINDO PHARMA
     Route: 048
     Dates: start: 20190205
  2. RITONAVIR. [Suspect]
     Active Substance: RITONAVIR
     Indication: HIV INFECTION
     Dosage: TOTAL DAILY DOSE: 100 MG/KG/HR,1 (TRIMESTER)
     Route: 048
     Dates: start: 20190205
  3. EMTRICITABINE;TENOFOVIR [Suspect]
     Active Substance: EMTRICITABINE\TENOFOVIR
     Indication: HIV INFECTION
     Dosage: TOTAL DAILY DOSE: 1 TAB/CAPS,1 (TRIMESTER)
     Route: 048
     Dates: start: 20101110
  4. EVOTAZ [Suspect]
     Active Substance: ATAZANAVIR SULFATE\COBICISTAT
     Indication: PRODUCT USED FOR UNKNOWN INDICATION
     Dosage: TOTAL DAILY DOSE: 1 TAB/CAPS,1 (TRIMESTER)
     Route: 048
     Dates: start: 20171014, end: 20190204

REACTIONS (3)
  - Abortion induced [Unknown]
  - Menstruation irregular [Unknown]
  - Maternal exposure during pregnancy [Unknown]

NARRATIVE: CASE EVENT DATE: 20190513
